FAERS Safety Report 10238705 (Version 1)
Quarter: 2014Q2

REPORT INFORMATION
  Report Type: Spontaneous
  Country: US (occurrence: US)
  Receive Date: 20140616
  Receipt Date: 20140616
  Transmission Date: 20141212
  Serious: Yes (Other)
  Sender: FDA-Public Use
  Company Number: US-BAYER-2014-086666

PATIENT
  Age: 38 Year
  Sex: Male

DRUGS (2)
  1. NIMODIPINE [Suspect]
     Indication: CEREBRAL VASOCONSTRICTION
     Route: 013
  2. NIMODIPINE [Suspect]
     Indication: MENINGITIS BACTERIAL

REACTIONS (6)
  - Drug ineffective for unapproved indication [Recovering/Resolving]
  - Cerebral ischaemia [Recovering/Resolving]
  - Off label use [None]
  - Bradycardia [Recovering/Resolving]
  - Mental impairment [Recovering/Resolving]
  - Motor dysfunction [Recovering/Resolving]
